FAERS Safety Report 15482590 (Version 1)
Quarter: 2018Q4

REPORT INFORMATION
  Report Type: Spontaneous
  Country: NL (occurrence: NL)
  Receive Date: 20181010
  Receipt Date: 20181010
  Transmission Date: 20190205
  Serious: Yes (Hospitalization)
  Sender: FDA-Public Use
  Company Number: NL-PFIZER INC-2018401242

PATIENT
  Age: 61 Year
  Sex: Male
  Weight: 100 kg

DRUGS (7)
  1. CYTARABINE. [Suspect]
     Active Substance: CYTARABINE
     Indication: MANTLE CELL LYMPHOMA
     Dosage: 2000 MG/M2, 2X/DAY FOR FOUR DAYS
     Route: 042
     Dates: start: 20180903, end: 20180906
  2. MACROGOL [Concomitant]
     Active Substance: POLYETHYLENE GLYCOLS
     Dosage: UNK, AS NEEDED
  3. NACL [Concomitant]
     Active Substance: SODIUM CHLORIDE
     Dosage: UNK
  4. CIPROFLOXACINE [CIPROFLOXACIN] [Concomitant]
     Dosage: 500 MG, 2X/DAY
  5. FLUCONAZOL [Concomitant]
     Active Substance: FLUCONAZOLE
     Dosage: 50 MG, 1X/DAY
     Route: 042
  6. TOBRAMYCINE [TOBRAMYCIN] [Concomitant]
     Dosage: 120 MG, 3X/DAY
  7. KYTRIL [Concomitant]
     Active Substance: GRANISETRON HYDROCHLORIDE
     Dosage: 3 MG, 1X/DAY (DAY 1 TO DAY 4)
     Dates: start: 20180903, end: 20180906

REACTIONS (2)
  - Ataxia [Recovering/Resolving]
  - Dysarthria [Recovering/Resolving]

NARRATIVE: CASE EVENT DATE: 20180906
